FAERS Safety Report 16519262 (Version 6)
Quarter: 2019Q4

REPORT INFORMATION
  Report Type: Report from Study
  Country: NL (occurrence: NL)
  Receive Date: 20190702
  Receipt Date: 20191029
  Transmission Date: 20200122
  Serious: Yes (Hospitalization, Other)
  Sender: FDA-Public Use
  Company Number: NL-INCYTE CORPORATION-2019IN005742

PATIENT

DRUGS (14)
  1. LEVOTHYROXINE. [Concomitant]
     Active Substance: LEVOTHYROXINE
     Indication: HYPOTHYROIDISM
     Dosage: 100 OT, UNK
     Route: 065
     Dates: start: 20000103
  2. JAKAVI [Suspect]
     Active Substance: RUXOLITINIB
     Dosage: 30 MG, UNK
     Route: 048
     Dates: start: 20180614
  3. PLAQUENIL [Concomitant]
     Active Substance: HYDROXYCHLOROQUINE SULFATE
     Indication: SJOGREN^S SYNDROME
     Dosage: 200 MG, UNK
     Route: 065
     Dates: start: 2006
  4. HYDROXYCHLOROQUINE [Concomitant]
     Active Substance: HYDROXYCHLOROQUINE
     Indication: SJOGREN^S SYNDROME
     Dosage: 200 OT, UNK
     Route: 065
     Dates: start: 2006
  5. OXYCODON [Concomitant]
     Active Substance: OXYCODONE
     Indication: PNEUMONIA
     Dosage: 5 OT, UNK
     Route: 065
     Dates: start: 20180506, end: 20180527
  6. OMEPRAZOLE. [Concomitant]
     Active Substance: OMEPRAZOLE
     Indication: GASTROINTESTINAL DISORDER PROPHYLAXIS
     Dosage: 40 OT, UNK
     Route: 065
     Dates: start: 20150724
  7. THIAMINE. [Concomitant]
     Active Substance: THIAMINE
     Indication: VITAMIN SUPPLEMENTATION
     Dosage: 50 OT, UNK
     Route: 065
     Dates: start: 20180522
  8. SALMETEROL/FLUTICASONPROPIONAAT [Concomitant]
     Active Substance: FLUTICASONE PROPIONATE\SALMETEROL XINAFOATE
     Indication: BRONCHIAL HYPERREACTIVITY
     Dosage: 550 OT, UNK
     Route: 065
     Dates: start: 2016
  9. VASELIIN [Concomitant]
     Indication: RASH
     Dosage: 1 OT, UNK
     Route: 065
     Dates: start: 201801
  10. JAKAVI [Suspect]
     Active Substance: RUXOLITINIB
     Indication: POLYCYTHAEMIA VERA
     Dosage: 20 MG, UNK
     Route: 048
     Dates: start: 20180515, end: 20180614
  11. FLUTICASONE FUROATE [Concomitant]
     Active Substance: FLUTICASONE FUROATE
     Indication: RHINITIS ALLERGIC
     Dosage: 1 OT, UNK
     Route: 065
     Dates: start: 20130506
  12. FLUTICASONE. [Concomitant]
     Active Substance: FLUTICASONE
     Indication: RASH
     Dosage: 50 OT, UNK
     Route: 065
     Dates: start: 201801
  13. ASA [Concomitant]
     Active Substance: ASPIRIN
     Indication: PROPHYLAXIS
     Dosage: 80 OT, UNK
     Route: 065
     Dates: start: 20170413
  14. OXYCODON [Concomitant]
     Active Substance: OXYCODONE
     Indication: MALAISE

REACTIONS (14)
  - Vomiting [Recovered/Resolved]
  - Pyrexia [Recovered/Resolved]
  - Constipation [Recovered/Resolved]
  - Dehydration [Recovered/Resolved]
  - Gastrooesophageal reflux disease [Recovered/Resolved]
  - Respiratory tract infection [Recovered/Resolved]
  - Diarrhoea [Not Recovered/Not Resolved]
  - Eye infection [Recovered/Resolved]
  - Pneumonia [Recovered/Resolved]
  - Muscle spasms [Not Recovered/Not Resolved]
  - Oedema peripheral [Not Recovered/Not Resolved]
  - Abdominal pain upper [Recovered/Resolved]
  - Diverticulitis [Recovered/Resolved]
  - Alopecia [Not Recovered/Not Resolved]

NARRATIVE: CASE EVENT DATE: 20180521
